FAERS Safety Report 8039258-9 (Version None)
Quarter: 2012Q1

REPORT INFORMATION
  Report Type: 
  Country: None (occurrence: None)
  Receive Date: 20120111
  Receipt Date: 20111215
  Transmission Date: 20120608
  Serious: No
  Sender: FDA-Public Use
  Company Number: US-AMGEN-USASP2011060364

PATIENT
  Age: 61 Year
  Sex: Female

DRUGS (1)
  1. ENBREL [Suspect]
     Indication: RHEUMATOID ARTHRITIS
     Dosage: 50 MG, QWK
     Dates: start: 20110401

REACTIONS (7)
  - NASOPHARYNGITIS [None]
  - MUSCULOSKELETAL DISCOMFORT [None]
  - CHILLS [None]
  - COUGH [None]
  - RHEUMATOID ARTHRITIS [None]
  - NAUSEA [None]
  - MALAISE [None]
